FAERS Safety Report 7710407-2 (Version None)
Quarter: 2011Q3

REPORT INFORMATION
  Report Type: 
  Country: None (occurrence: None)
  Receive Date: 20110825
  Receipt Date: 20110810
  Transmission Date: 20111222
  Serious: Yes (Hospitalization, Other)
  Sender: FDA-Public Use
  Company Number: US-ELI_LILLY_AND_COMPANY-US201103003149

PATIENT
  Sex: Female

DRUGS (14)
  1. FORTEO [Suspect]
     Dosage: 20 UG, QD
     Route: 065
  2. PREDNISONE [Concomitant]
  3. IMURAN [Concomitant]
  4. CALCIUM CARBONATE [Concomitant]
  5. FORTEO [Suspect]
     Indication: OSTEOPOROSIS
     Dosage: 20 UG, DAILY (1/D)
     Route: 065
     Dates: start: 20110308
  6. PLAQUENIL [Concomitant]
  7. CITALOPRAM HYDROBROMIDE [Concomitant]
  8. CARVEDILOL [Concomitant]
  9. MULTI-VITAMIN [Concomitant]
  10. WARFARIN SODIUM [Concomitant]
  11. PERCOCET [Concomitant]
  12. ASTHMADEX [Concomitant]
  13. LOVASTATIN [Concomitant]
  14. PEPCID [Concomitant]

REACTIONS (6)
  - KIDNEY INFECTION [None]
  - NASOPHARYNGITIS [None]
  - HEADACHE [None]
  - DIZZINESS [None]
  - COLITIS [None]
  - HYPERSENSITIVITY [None]
